FAERS Safety Report 25474403 (Version 1)
Quarter: 2025Q2

REPORT INFORMATION
  Report Type: Report from Study
  Country: US (occurrence: US)
  Receive Date: 20250624
  Receipt Date: 20250624
  Transmission Date: 20250716
  Serious: Yes (Life-Threatening, Hospitalization)
  Sender: IOVANCE BIOTHERAPEUTICS MANUFACTURING LLC
  Company Number: US-IOVANCE BIOTHERAPEUTICS INC.-IOV2025000049

PATIENT

DRUGS (4)
  1. ALDESLEUKIN [Suspect]
     Active Substance: ALDESLEUKIN
     Indication: Metastatic malignant melanoma
     Route: 065
     Dates: start: 20250610, end: 20250611
  2. AMTAGVI [Suspect]
     Active Substance: LIFILEUCEL
     Indication: Metastatic malignant melanoma
     Route: 065
     Dates: start: 20250609, end: 20250609
  3. CYCLOPHOSPHAMIDE [Suspect]
     Active Substance: CYCLOPHOSPHAMIDE
     Indication: Metastatic malignant melanoma
     Route: 065
     Dates: start: 20250602, end: 20250603
  4. FLUDARABINE [Suspect]
     Active Substance: FLUDARABINE PHOSPHATE
     Indication: Metastatic malignant melanoma
     Route: 065
     Dates: start: 20250604, end: 20250608

REACTIONS (3)
  - White blood cell count decreased [Not Recovered/Not Resolved]
  - Neutrophil count decreased [Not Recovered/Not Resolved]
  - Thrombocytopenia [Not Recovered/Not Resolved]

NARRATIVE: CASE EVENT DATE: 20250610
